FAERS Safety Report 9785292 (Version 1)
Quarter: 2013Q4

REPORT INFORMATION
  Report Type: Report from Study
  Country: US (occurrence: US)
  Receive Date: 20131227
  Receipt Date: 20131227
  Transmission Date: 20140711
  Serious: No
  Sender: FDA-Public Use
  Company Number: US-B.I. PHARMACEUTICALS,INC./RIDGEFIELD-2013-BI-43313BI

PATIENT
  Sex: Female

DRUGS (8)
  1. GILOTRIF [Suspect]
     Indication: METASTASIS
     Dosage: 40 MG
     Route: 048
     Dates: start: 201311, end: 20131215
  2. RESTASIS 0.05% EYE EMULSION [Concomitant]
     Dosage: STRENGTH-0.05%
  3. LOPERAMIDE [Concomitant]
     Dosage: 2 MG
  4. EUCERIN ORIGINAL [Concomitant]
     Dosage: FORMULATIION- LOTION
  5. PROMETHAZINE [Concomitant]
     Dosage: 25 MG
  6. DICYCLOMINE [Concomitant]
     Dosage: 20 MG
  7. DIPHENOXYALATE-ATROPINE [Concomitant]
  8. AMLODIPINE BESYLATE [Concomitant]
     Dosage: 5 MG

REACTIONS (4)
  - Diarrhoea [Unknown]
  - Cheilitis [Unknown]
  - Rash [Unknown]
  - Gastroenteritis viral [Unknown]
